FAERS Safety Report 18563489 (Version 1)
Quarter: 2020Q4

REPORT INFORMATION
  Report Type: Spontaneous
  Country: US (occurrence: US)
  Receive Date: 20201201
  Receipt Date: 20201201
  Transmission Date: 20210114
  Serious: No
  Sender: FDA-Public Use
  Company Number: US-TEVA-2020-US-1854850

PATIENT
  Sex: Male

DRUGS (2)
  1. FENTANYL. [Suspect]
     Active Substance: FENTANYL
     Indication: PRODUCT USED FOR UNKNOWN INDICATION
     Route: 065
  2. OXYCONTIN [Suspect]
     Active Substance: OXYCODONE HYDROCHLORIDE
     Dosage: OXYCONTIN EQUAL TO AND GREATER THAN LESS THAN 120 MG PER DAY
     Dates: start: 1990

REACTIONS (4)
  - Loss of personal independence in daily activities [Unknown]
  - Loss of employment [Unknown]
  - Economic problem [Unknown]
  - Overdose [Unknown]
